FAERS Safety Report 11414116 (Version 2)
Quarter: 2015Q3

REPORT INFORMATION
  Report Type: Spontaneous
  Country: TR (occurrence: TR)
  Receive Date: 20150824
  Receipt Date: 20150927
  Transmission Date: 20151125
  Serious: Yes (Other)
  Sender: FDA-Public Use
  Company Number: TR-MYLANLABS-2015M1028214

PATIENT

DRUGS (6)
  1. PHOSPHORUS [Concomitant]
     Active Substance: PHOSPHORUS
  2. HYDROCHLOROTHIAZIDE. [Concomitant]
     Active Substance: HYDROCHLOROTHIAZIDE
     Dosage: UNK
     Dates: start: 2001
  3. CYSTAGON [Suspect]
     Active Substance: CYSTEAMINE BITARTRATE
     Indication: CYSTINOSIS
     Dosage: 70 MG/KG, QD
     Route: 048
     Dates: start: 2001
  4. BICARBONATE [Concomitant]
     Active Substance: BICARBONATE ION
  5. CYSTAGON [Suspect]
     Active Substance: CYSTEAMINE BITARTRATE
     Dosage: 60 MG/KG, QD
     Route: 048
     Dates: start: 201209
  6. CALCITRIOL. [Concomitant]
     Active Substance: CALCITRIOL

REACTIONS (1)
  - Systemic lupus erythematosus [Not Recovered/Not Resolved]
